FAERS Safety Report 17170785 (Version 1)
Quarter: 2019Q4

REPORT INFORMATION
  Report Type: Report from Study
  Country: JP (occurrence: JP)
  Receive Date: 20191218
  Receipt Date: 20191218
  Transmission Date: 20200122
  Serious: Yes (Death)
  Sender: FDA-Public Use
  Company Number: JP-MYLANLABS-2019M1125610

PATIENT
  Age: 1 Year
  Sex: Female

DRUGS (3)
  1. CARBOPLATIN. [Suspect]
     Active Substance: CARBOPLATIN
     Indication: RHABDOID TUMOUR OF THE KIDNEY
     Route: 065
  2. IFOSFAMIDE. [Suspect]
     Active Substance: IFOSFAMIDE
     Indication: RHABDOID TUMOUR OF THE KIDNEY
     Dosage: 1.8 G/M2 ON DAYS 1-7; INJECTION ADMINISTRATION TIME WAS 2 HOURS
     Route: 065
  3. ETOPOSIDE. [Suspect]
     Active Substance: ETOPOSIDE
     Indication: RHABDOID TUMOUR OF THE KIDNEY
     Route: 065

REACTIONS (2)
  - Cardiac failure [Fatal]
  - Toxic encephalopathy [Fatal]
